FAERS Safety Report 9197453 (Version 2)
Quarter: 2013Q1

REPORT INFORMATION
  Report Type: Report from Study
  Country: JP (occurrence: JP)
  Receive Date: 20130328
  Receipt Date: 20130328
  Transmission Date: 20140127
  Serious: Yes (Other)
  Sender: FDA-Public Use
  Company Number: JP-GLAXOSMITHKLINE-B0707263A

PATIENT
  Age: 64 Year
  Sex: Female
  Weight: 58 kg

DRUGS (8)
  1. TYKERB [Suspect]
     Indication: BREAST CANCER
     Route: 048
     Dates: start: 20100726, end: 20100915
  2. TYKERB [Suspect]
     Indication: BREAST CANCER
     Route: 048
     Dates: start: 20100921
  3. XELODA [Suspect]
     Indication: PRODUCT USED FOR UNKNOWN INDICATION
     Route: 048
     Dates: start: 20100726, end: 20100808
  4. XELODA [Suspect]
     Indication: PRODUCT USED FOR UNKNOWN INDICATION
     Route: 048
     Dates: start: 20100823
  5. VINORELBINE DITARTRATE [Suspect]
     Indication: BREAST CANCER
     Route: 042
     Dates: start: 20100510, end: 20101115
  6. GEMCITABINE [Suspect]
     Indication: BREAST CANCER
     Route: 042
     Dates: start: 20101206
  7. DOCETAXEL HYDRATE [Suspect]
     Indication: BREAST CANCER
     Route: 042
     Dates: start: 20110517
  8. CYCLOPHOSPHAMIDE [Concomitant]
     Indication: BREAST CANCER
     Route: 042
     Dates: start: 20110328

REACTIONS (12)
  - Cellulitis [Recovered/Resolved]
  - Stomatitis [Recovered/Resolved]
  - White blood cell count decreased [Recovered/Resolved]
  - Palmar-plantar erythrodysaesthesia syndrome [Recovering/Resolving]
  - Diarrhoea [Recovered/Resolved]
  - Lymphocyte percentage increased [None]
  - Neutrophil percentage decreased [None]
  - Monocyte percentage increased [None]
  - White blood cell count increased [None]
  - Neutrophil percentage increased [None]
  - Leukopenia [None]
  - Pyrexia [None]
